FAERS Safety Report 10048323 (Version 1)
Quarter: 2014Q1

REPORT INFORMATION
  Report Type: Spontaneous
  Country: CA (occurrence: CA)
  Receive Date: 20140331
  Receipt Date: 20140331
  Transmission Date: 20141002
  Serious: Yes (Death)
  Sender: FDA-Public Use
  Company Number: CA-GLAXOSMITHKLINE-A1066933A

PATIENT
  Age: 61 Year
  Sex: Female

DRUGS (11)
  1. TYKERB [Suspect]
     Indication: PRODUCT USED FOR UNKNOWN INDICATION
     Dosage: 1250MG PER DAY
     Route: 048
  2. ADVAIR [Concomitant]
  3. FRAGMIN [Concomitant]
  4. HYDROMORPHONE [Concomitant]
  5. LORAZEPAM [Concomitant]
  6. METOCLOPRAMIDE [Concomitant]
  7. PANTOPRAZOLE [Concomitant]
  8. SINGULAR [Concomitant]
  9. SYMBICORT [Concomitant]
  10. VENTOLIN [Concomitant]
  11. XELODA [Concomitant]

REACTIONS (2)
  - Drug ineffective [Unknown]
  - Death [Fatal]
